FAERS Safety Report 25067538 (Version 1)
Quarter: 2025Q1

REPORT INFORMATION
  Report Type: Spontaneous
  Country: US (occurrence: None)
  Receive Date: 20250311
  Receipt Date: 20250311
  Transmission Date: 20250408
  Serious: Yes (Hospitalization)
  Sender: FDA-CTU
  Company Number: None

PATIENT
  Age: 91 Year
  Sex: Male
  Weight: 64.9 kg

DRUGS (8)
  1. CEFTRIAXONE [Suspect]
     Active Substance: CEFTRIAXONE
     Indication: Endocarditis enterococcal
     Dosage: FREQUENCY : TWICE A DAY;?
     Route: 042
     Dates: start: 20250124, end: 20250217
  2. CEFTRIAXONE [Suspect]
     Active Substance: CEFTRIAXONE
     Indication: Endocarditis
  3. CEFTRIAXONE [Suspect]
     Active Substance: CEFTRIAXONE
     Indication: Arthritis bacterial
  4. AMPICILLIN [Suspect]
     Active Substance: AMPICILLIN
     Indication: Endocarditis enterococcal
     Dosage: FREQUENCY : TWICE A DAY;?
     Route: 042
     Dates: start: 20250118, end: 20250217
  5. AMPICILLIN [Suspect]
     Active Substance: AMPICILLIN
     Indication: Endocarditis
  6. AMPICILLIN [Suspect]
     Active Substance: AMPICILLIN
     Indication: Arthritis bacterial
  7. LOSARTAN [Suspect]
     Active Substance: LOSARTAN
  8. VANCOMYCIN [Suspect]
     Active Substance: VANCOMYCIN

REACTIONS (14)
  - Drug reaction with eosinophilia and systemic symptoms [None]
  - Drug reaction with eosinophilia and systemic symptoms [None]
  - Mental status changes [None]
  - Acute myocardial infarction [None]
  - Dialysis [None]
  - Type IV hypersensitivity reaction [None]
  - Eosinophilia [None]
  - Skin exfoliation [None]
  - Rash pruritic [None]
  - Rash morbilliform [None]
  - Confusional state [None]
  - Leukocytosis [None]
  - Drug eruption [None]
  - Human herpesvirus 6 infection reactivation [None]

NARRATIVE: CASE EVENT DATE: 20250217
